FAERS Safety Report 13194013 (Version 1)
Quarter: 2017Q1

REPORT INFORMATION
  Report Type: Spontaneous
  Country: DE (occurrence: DE)
  Receive Date: 20170207
  Receipt Date: 20170207
  Transmission Date: 20170428
  Serious: Yes (Other)
  Sender: FDA-Public Use
  Company Number: DE-TEVA-734697GER

PATIENT
  Age: 1 Day
  Sex: Male
  Weight: 1.94 kg

DRUGS (8)
  1. ARIXTRA [Concomitant]
     Active Substance: FONDAPARINUX SODIUM
     Indication: FACTOR XII DEFICIENCY
     Dosage: 2.5 MILLIGRAM DAILY;
     Route: 064
  2. FOLIO FORTE [Concomitant]
     Active Substance: FOLIC ACID\VITAMINS
     Indication: PROPHYLAXIS OF NEURAL TUBE DEFECT
     Dosage: .8 MILLIGRAM DAILY;
     Route: 064
     Dates: start: 20151025, end: 20160703
  3. CLEXANE [Concomitant]
     Active Substance: ENOXAPARIN SODIUM
     Indication: FACTOR XII DEFICIENCY
     Dosage: 40 MILLIGRAM DAILY;
     Route: 064
  4. VANCOMYCIN [Concomitant]
     Active Substance: VANCOMYCIN
     Indication: CLOSTRIDIAL INFECTION
     Route: 064
     Dates: start: 20160130, end: 20160208
  5. L-THYROXIN [Concomitant]
     Active Substance: LEVOTHYROXINE SODIUM
     Indication: HYPOTHYROIDISM
     Dosage: 50 MICROGRAM DAILY;
     Route: 064
     Dates: start: 20151025, end: 20160703
  6. METRONIDAZOL [Concomitant]
     Active Substance: METRONIDAZOLE
     Indication: CLOSTRIDIAL INFECTION
     Route: 064
     Dates: start: 20160130, end: 20160205
  7. CICLOSPORIN [Suspect]
     Active Substance: CYCLOSPORINE
     Indication: COLITIS ULCERATIVE
     Dosage: 125 MILLIGRAM DAILY;
     Route: 064
  8. PREDNISOLON [Suspect]
     Active Substance: PREDNISOLONE
     Indication: COLITIS ULCERATIVE
     Dosage: 15 MILLIGRAM DAILY;
     Route: 064
     Dates: start: 20151025, end: 20160703

REACTIONS (2)
  - Small for dates baby [Recovering/Resolving]
  - Foetal exposure during pregnancy [Unknown]

NARRATIVE: CASE EVENT DATE: 20151025
